FAERS Safety Report 8688433 (Version 3)
Quarter: 2019Q4

REPORT INFORMATION
  Report Type: Spontaneous
  Country: US (occurrence: US)
  Receive Date: 20120727
  Receipt Date: 20191106
  Transmission Date: 20200122
  Serious: No
  Sender: FDA-Public Use
  Company Number: US-PFIZER INC-2012178165

PATIENT
  Age: 58 Year
  Sex: Female
  Weight: 68.27 kg

DRUGS (2)
  1. PREMPRO [Suspect]
     Active Substance: ESTROGENS, CONJUGATED\MEDROXYPROGESTERONE ACETATE
     Dosage: UNK
     Route: 048
  2. PREMPRO [Suspect]
     Active Substance: ESTROGENS, CONJUGATED\MEDROXYPROGESTERONE ACETATE
     Indication: HORMONE REPLACEMENT THERAPY
     Dosage: 0.625/2.5 MG, UNK
     Route: 048
     Dates: start: 20000701

REACTIONS (3)
  - Pain [Unknown]
  - Drug ineffective [Unknown]
  - Insomnia [Unknown]
